FAERS Safety Report 5168746-8 (Version None)
Quarter: 2006Q4

REPORT INFORMATION
  Report Type: 
  Country: None (occurrence: None)
  Receive Date: 20061211
  Receipt Date: 20061103
  Transmission Date: 20070319
  Serious: Yes (Other)
  Sender: FDA-Public Use
  Company Number: US-AMGEN-US199096

PATIENT
  Sex: Female
  Weight: 49.9 kg

DRUGS (2)
  1. KINERET [Suspect]
     Indication: RHEUMATOID ARTHRITIS
     Route: 058
     Dates: start: 20030101, end: 20060301
  2. METHOTREXATE [Concomitant]
     Dates: start: 20000101, end: 20060301

REACTIONS (2)
  - OVARIAN CANCER [None]
  - RENAL DISORDER [None]
